FAERS Safety Report 5624945-X (Version None)
Quarter: 2008Q1

REPORT INFORMATION
  Report Type: 
  Country: None (occurrence: None)
  Receive Date: 20080213
  Receipt Date: 20080207
  Transmission Date: 20080703
  Serious: Yes (Disabling)
  Sender: FDA-Public Use
  Company Number: US-SANOFI-SYNTHELABO-A03200800508

PATIENT
  Sex: Female

DRUGS (3)
  1. OXALIPLATIN [Suspect]
     Indication: COLON CANCER
     Route: 042
  2. LEUCOVORIN CALCIUM [Suspect]
     Indication: COLON CANCER
     Route: 042
  3. FLUOROURACIL [Suspect]
     Indication: COLON CANCER
     Route: 042

REACTIONS (2)
  - COGNITIVE DISORDER [None]
  - WALKING DISABILITY [None]
